FAERS Safety Report 7452156-4 (Version None)
Quarter: 2011Q2

REPORT INFORMATION
  Report Type: 
  Country: None (occurrence: None)
  Receive Date: 20110502
  Receipt Date: 20110426
  Transmission Date: 20111010
  Serious: Yes (Hospitalization, Other)
  Sender: FDA-Public Use
  Company Number: FR-SANOFI-AVENTIS-2011SA025998

PATIENT
  Age: 87 Year
  Sex: Female

DRUGS (7)
  1. KARDEGIC [Concomitant]
  2. BUDESONIDE/FORMOTEROL [Concomitant]
  3. AMLODIPINE BESYLATE [Concomitant]
  4. ZOPICLONE [Concomitant]
  5. FLUDEX [Suspect]
     Indication: HYPERTENSION
     Route: 065
     Dates: start: 20110210, end: 20110307
  6. CELECTOL [Concomitant]
  7. PRAVASTATIN [Concomitant]

REACTIONS (3)
  - HYPOKALAEMIA [None]
  - HEAD INJURY [None]
  - FALL [None]
